FAERS Safety Report 7241328-X (Version None)
Quarter: 2011Q1

REPORT INFORMATION
  Report Type: 
  Country: None (occurrence: None)
  Receive Date: 20110124
  Receipt Date: 20110118
  Transmission Date: 20110831
  Serious: Yes (Death)
  Sender: FDA-Public Use
  Company Number: NO-ROCHE-753719

PATIENT
  Sex: Female

DRUGS (1)
  1. ROACTEMRA [Suspect]
     Route: 065
     Dates: end: 20100101

REACTIONS (1)
  - CEREBROVASCULAR ACCIDENT [None]
